FAERS Safety Report 7157829-9 (Version None)
Quarter: 2010Q4

REPORT INFORMATION
  Report Type: 
  Country: None (occurrence: None)
  Receive Date: 20101214
  Receipt Date: 20101207
  Transmission Date: 20110411
  Serious: Yes (Other)
  Sender: FDA-Public Use
  Company Number: US-BRISTOL-MYERS SQUIBB COMPANY-15428097

PATIENT
  Sex: Female
  Weight: 43 kg

DRUGS (1)
  1. KENALOG-40 [Suspect]
     Indication: HERPES ZOSTER
     Dates: start: 20100801

REACTIONS (2)
  - DRUG INEFFECTIVE [None]
  - INJECTION SITE FIBROSIS [None]
